FAERS Safety Report 4325310-8 (Version None)
Quarter: 2004Q1

REPORT INFORMATION
  Report Type: 
  Country: None (occurrence: None)
  Receive Date: 20040326
  Receipt Date: 20040326
  Transmission Date: 20041129
  Serious: Yes (Hospitalization)
  Sender: FDA-Public Use
  Company Number: None

PATIENT
  Age: 64 Year
  Sex: Male

DRUGS (1)
  1. ENALAPRIL MALEATE [Suspect]

REACTIONS (2)
  - ANGIONEUROTIC OEDEMA [None]
  - RESPIRATORY RATE INCREASED [None]
